FAERS Safety Report 10084420 (Version 1)
Quarter: 2014Q2

REPORT INFORMATION
  Report Type: Spontaneous
  Country: FR (occurrence: FR)
  Receive Date: 20140417
  Receipt Date: 20140417
  Transmission Date: 20141212
  Serious: Yes (Other)
  Sender: FDA-Public Use
  Company Number: FR-ASTRAZENECA-2014SE24989

PATIENT
  Age: 124 Day
  Sex: Female

DRUGS (1)
  1. INEXIUM [Suspect]
     Indication: GASTROOESOPHAGEAL REFLUX DISEASE
     Route: 048
     Dates: start: 2011, end: 20110930

REACTIONS (4)
  - Neutropenia [Recovered/Resolved]
  - Pain [Unknown]
  - Choking [Unknown]
  - Therapy cessation [Unknown]
